FAERS Safety Report 10620558 (Version 10)
Quarter: 2015Q2

REPORT INFORMATION
  Report Type: Spontaneous
  Country: US (occurrence: US)
  Receive Date: 20141202
  Receipt Date: 20150629
  Transmission Date: 20150821
  Serious: Yes (Hospitalization, Other)
  Sender: FDA-Public Use
  Company Number: US-GLAXOSMITHKLINE-A1076767A

PATIENT
  Age: 53 Year
  Sex: Female

DRUGS (6)
  1. WELLBUTRIN [Suspect]
     Active Substance: BUPROPION HYDROCHLORIDE
     Indication: PRODUCT USED FOR UNKNOWN INDICATION
     Dosage: UNK, U
     Dates: start: 2012
  2. FLOVENT DISKUS [Suspect]
     Active Substance: FLUTICASONE PROPIONATE
     Indication: CHRONIC OBSTRUCTIVE PULMONARY DISEASE
     Dosage: UNK, U
     Route: 065
  3. VENTOLIN HFA [Suspect]
     Active Substance: ALBUTEROL SULFATE
     Indication: EMPHYSEMA
     Dosage: 1 PUFF(S), PRN
     Route: 065
  4. ALBUTEROL. [Concomitant]
     Active Substance: ALBUTEROL
  5. VENTOLIN HFA [Suspect]
     Active Substance: ALBUTEROL SULFATE
     Indication: CHRONIC OBSTRUCTIVE PULMONARY DISEASE
     Dosage: 2 PUFF(S), PRN
     Route: 055
     Dates: start: 2011
  6. VENTOLIN HFA [Suspect]
     Active Substance: ALBUTEROL SULFATE
     Dosage: UNK

REACTIONS (26)
  - Weight gain poor [Unknown]
  - Drug ineffective [Unknown]
  - Heart valve incompetence [Unknown]
  - Dyspnoea [Unknown]
  - Panic reaction [Not Recovered/Not Resolved]
  - Arrhythmia [Not Recovered/Not Resolved]
  - Stress [Unknown]
  - Palpitations [Unknown]
  - Drug dose omission [Unknown]
  - Asthma [Unknown]
  - Bronchitis [Unknown]
  - Anxiety [Unknown]
  - Abdominal discomfort [Unknown]
  - Chronic obstructive pulmonary disease [Unknown]
  - Depression [Unknown]
  - Panic attack [Unknown]
  - Incorrect dose administered [Unknown]
  - Hypermetabolism [Unknown]
  - Product quality issue [Unknown]
  - Inhalation therapy [Unknown]
  - Hypertension [Unknown]
  - Insomnia [Unknown]
  - Restlessness [Unknown]
  - Cardiac disorder [Unknown]
  - Hospitalisation [Unknown]
  - Atrioventricular block [Unknown]

NARRATIVE: CASE EVENT DATE: 201312
